FAERS Safety Report 7707895-4 (Version None)
Quarter: 2011Q3

REPORT INFORMATION
  Report Type: 
  Country: None (occurrence: None)
  Receive Date: 20110824
  Receipt Date: 20110818
  Transmission Date: 20111222
  Serious: Yes (Other)
  Sender: FDA-Public Use
  Company Number: US-MERCK-1103USA03929

PATIENT
  Age: 59 Year
  Sex: Female

DRUGS (3)
  1. CALCIUM (UNSPECIFIED) AND VITAMIN D (UNSPECIFIED) [Concomitant]
     Route: 048
     Dates: start: 19900101
  2. FOSAMAX PLUS D [Suspect]
     Indication: OSTEOPENIA
     Route: 048
     Dates: start: 20050928
  3. FOSAMAX [Suspect]
     Indication: OSTEOPENIA
     Route: 048
     Dates: start: 20040512, end: 20100101

REACTIONS (8)
  - TOOTH INFECTION [None]
  - FEMUR FRACTURE [None]
  - ADVERSE EVENT [None]
  - FRACTURE NONUNION [None]
  - FALL [None]
  - VITAMIN D DEFICIENCY [None]
  - STRESS FRACTURE [None]
  - CALCIUM DEFICIENCY [None]
